FAERS Safety Report 4317313-4 (Version None)
Quarter: 2004Q1

REPORT INFORMATION
  Report Type: 
  Country: None (occurrence: None)
  Receive Date: 20040304
  Receipt Date: 20040220
  Transmission Date: 20041129
  Serious: Yes (Disabling)
  Sender: FDA-Public Use
  Company Number: 2004-113185-NL

PATIENT
  Age: 72 Year
  Sex: Male

DRUGS (1)
  1. TICE BCG [Suspect]
     Indication: CARCINOMA IN SITU OF BLADDER
     Dosage: DF INTRAVESICAL
     Route: 043
     Dates: start: 20031201, end: 20040103

REACTIONS (1)
  - LEUKOCYTOCLASTIC VASCULITIS [None]
